FAERS Safety Report 6165013-0 (Version None)
Quarter: 2009Q2

REPORT INFORMATION
  Report Type: 
  Country: None (occurrence: None)
  Receive Date: 20090421
  Receipt Date: 20090421
  Transmission Date: 20091009
  Serious: No
  Sender: FDA-Public Use
  Company Number: None

PATIENT
  Sex: Female

DRUGS (1)
  1. SYNTHROID [Suspect]
     Dates: start: 20070101

REACTIONS (2)
  - PRODUCT SUBSTITUTION ISSUE [None]
  - THYROID FUNCTION TEST ABNORMAL [None]
